FAERS Safety Report 7067726-5 (Version None)
Quarter: 2010Q4

REPORT INFORMATION
  Report Type: 
  Country: None (occurrence: None)
  Receive Date: 20101028
  Receipt Date: 20101025
  Transmission Date: 20110411
  Serious: Yes (Hospitalization)
  Sender: FDA-Public Use
  Company Number: GB-MILLENNIUM PHARMACEUTICALS, INC.-2010-05165

PATIENT

DRUGS (13)
  1. VELCADE [Suspect]
     Indication: MULTIPLE MYELOMA
     Dosage: 1 MG/M2, UNK
     Route: 065
     Dates: start: 20100401
  2. DOXORUBICIN [Suspect]
     Indication: MULTIPLE MYELOMA
     Dosage: 9 MG/M2, UNK
     Dates: start: 20100401
  3. DEXAMETHASONE [Suspect]
     Indication: MULTIPLE MYELOMA
     Dosage: 40 MG, UNK
     Dates: start: 20100401
  4. OXYCODONE HCL [Concomitant]
     Dosage: 10 MG, UNK
     Route: 048
  5. METOCLOPRAMIDE [Concomitant]
     Dosage: 10 MG, UNK
     Route: 048
  6. CYCLIZINE [Concomitant]
     Dosage: 50 MG, UNK
  7. QUININE SULFATE [Concomitant]
     Dosage: 300 MG, UNK
     Route: 048
  8. FENTANYL [Concomitant]
     Dosage: 25 UG, UNK
  9. MORPHINE SULFATE [Concomitant]
     Dosage: 30 MG, UNK
     Route: 048
  10. ALLOPURINOL [Concomitant]
     Dosage: 100 MG, UNK
     Route: 048
  11. PARACETAMOL [Concomitant]
     Route: 048
  12. COTRIM [Concomitant]
     Dosage: 480 MG, UNK
     Route: 048
  13. ARANESP [Concomitant]
     Dosage: 40 UG, UNK

REACTIONS (2)
  - GOUT [None]
  - PNEUMONIA [None]
